FAERS Safety Report 6401041-5 (Version None)
Quarter: 2009Q4

REPORT INFORMATION
  Report Type: 
  Country: None (occurrence: None)
  Receive Date: 20091013
  Receipt Date: 20091013
  Transmission Date: 20100525
  Serious: Yes (Hospitalization)
  Sender: FDA-Public Use
  Company Number: None

PATIENT
  Sex: Female
  Weight: 3.215 kg

DRUGS (2)
  1. GENTAK [Suspect]
     Indication: INCLUSION CONJUNCTIVITIS NEONATAL
     Dosage: 1/2^ RIBBON TO BOTH EVES ONE TIME ONLY OPHTHALMIC
     Route: 047
     Dates: start: 20091006, end: 20091006
  2. GENTAK [Suspect]
     Indication: PROPHYLAXIS
     Dosage: 1/2^ RIBBON TO BOTH EVES ONE TIME ONLY OPHTHALMIC
     Route: 047
     Dates: start: 20091006, end: 20091006

REACTIONS (3)
  - EYE SWELLING [None]
  - OCULAR HYPERAEMIA [None]
  - UNEVALUABLE EVENT [None]
